FAERS Safety Report 24877378 (Version 1)
Quarter: 2025Q1

REPORT INFORMATION
  Report Type: Spontaneous
  Country: CN (occurrence: CN)
  Receive Date: 20250123
  Receipt Date: 20250123
  Transmission Date: 20250409
  Serious: Yes (Hospitalization)
  Sender: MACLEODS
  Company Number: CN-MACLEODS PHARMA-MAC2025051270

PATIENT

DRUGS (1)
  1. METHIMAZOLE [Suspect]
     Active Substance: METHIMAZOLE
     Indication: Hyperthyroidism
     Route: 065

REACTIONS (8)
  - Thyrotoxic crisis [Recovered/Resolved]
  - Hyponatraemia [Recovered/Resolved]
  - Hyperbilirubinaemia [Recovered/Resolved]
  - Hypokalaemia [Recovered/Resolved]
  - Hypochloraemia [Recovered/Resolved]
  - Upper respiratory tract infection [Recovered/Resolved]
  - Pancytopenia [Recovered/Resolved]
  - Agranulocytosis [Recovered/Resolved]
